FAERS Safety Report 24791156 (Version 1)
Quarter: 2024Q4

REPORT INFORMATION
  Report Type: Spontaneous
  Country: US (occurrence: US)
  Receive Date: 20241230
  Receipt Date: 20241230
  Transmission Date: 20250114
  Serious: No
  Sender: CIPLA
  Company Number: US-CIPLA LTD.-2024US04438

PATIENT

DRUGS (4)
  1. BUDESONIDE [Suspect]
     Active Substance: BUDESONIDE
     Indication: Asthma
     Dosage: UNK
     Dates: start: 202312
  2. BUDESONIDE [Suspect]
     Active Substance: BUDESONIDE
     Dosage: UNK UNK, BID (ONCE AT MORNING AND ONCE AT NIGHT)
     Dates: start: 20240414
  3. BUDESONIDE [Suspect]
     Active Substance: BUDESONIDE
     Dosage: UNK
  4. ALBUTEROL [Concomitant]
     Active Substance: ALBUTEROL
     Indication: Asthma
     Dosage: UNK (VIA NEBULIZER)
     Route: 065
     Dates: start: 202312

REACTIONS (6)
  - Somnolence [Not Recovered/Not Resolved]
  - Asthma [Recovered/Resolved]
  - Poor quality product administered [Unknown]
  - Product contamination [Unknown]
  - Product quality issue [Unknown]
  - Fatigue [Recovered/Resolved]

NARRATIVE: CASE EVENT DATE: 20240414
